FAERS Safety Report 5499807-1 (Version None)
Quarter: 2007Q4

REPORT INFORMATION
  Report Type: 
  Country: None (occurrence: None)
  Receive Date: 20071026
  Receipt Date: 20071015
  Transmission Date: 20080405
  Serious: Yes (Other)
  Sender: FDA-Public Use
  Company Number: US-PFIZER INC-2007074151

PATIENT
  Sex: Male
  Weight: 99.3 kg

DRUGS (21)
  1. VFEND [Suspect]
     Indication: ANTIFUNGAL PROPHYLAXIS
     Route: 042
     Dates: start: 20070815, end: 20070816
  2. VFEND [Suspect]
     Route: 042
     Dates: start: 20070816, end: 20070921
  3. VFEND [Suspect]
     Route: 048
     Dates: start: 20070822, end: 20070902
  4. SOLU-MEDROL [Suspect]
     Indication: TRANSPLANT REJECTION
     Route: 042
     Dates: start: 20070817, end: 20070819
  5. SOLU-MEDROL [Suspect]
     Route: 042
     Dates: start: 20070820, end: 20070821
  6. SOLU-MEDROL [Suspect]
     Route: 042
     Dates: start: 20070822, end: 20070823
  7. PREDNISONE [Suspect]
     Indication: TRANSPLANT REJECTION
     Route: 048
     Dates: start: 20070823, end: 20070824
  8. PREDNISONE [Suspect]
     Route: 048
     Dates: start: 20070824, end: 20070825
  9. PREDNISONE [Suspect]
     Route: 048
     Dates: start: 20070825, end: 20070826
  10. PREDNISONE [Suspect]
     Route: 048
     Dates: start: 20070827, end: 20070829
  11. PREDNISONE [Suspect]
     Dosage: DAILY DOSE:30MG
     Route: 048
     Dates: start: 20070829, end: 20070829
  12. PREDNISONE [Suspect]
     Dosage: DAILY DOSE:40MG
     Route: 048
  13. ACYCLOVIR [Suspect]
     Indication: ANTIVIRAL PROPHYLAXIS
     Route: 048
  14. ANTIBIOTICS [Suspect]
  15. DILANTIN [Suspect]
     Indication: GRAND MAL CONVULSION
  16. CARDIZEM [Concomitant]
     Indication: ATRIAL FIBRILLATION
     Route: 042
     Dates: start: 20070817, end: 20070817
  17. CARDIZEM [Concomitant]
     Route: 048
  18. CYCLOSPORINE [Concomitant]
     Route: 048
  19. ALL OTHER THERAPEUTIC PRODUCTS [Concomitant]
  20. MYCOPHENOLATE MOFETIL [Concomitant]
     Route: 048
  21. METRONIDAZOLE [Concomitant]
     Route: 048

REACTIONS (6)
  - AMNESIA [None]
  - ATRIAL FIBRILLATION [None]
  - CONFUSIONAL STATE [None]
  - CONVULSION [None]
  - DISORIENTATION [None]
  - UNRESPONSIVE TO STIMULI [None]
